FAERS Safety Report 5517838-X (Version None)
Quarter: 2007Q4

REPORT INFORMATION
  Report Type: 
  Country: None (occurrence: None)
  Receive Date: 20071113
  Receipt Date: 20071102
  Transmission Date: 20080405
  Serious: Yes (Other)
  Sender: FDA-Public Use
  Company Number: 2007S1000273

PATIENT
  Age: 33 Year
  Sex: Female
  Weight: 67.1324 kg

DRUGS (1)
  1. OLUX [Suspect]
     Indication: PSORIASIS
     Dosage: 0.05 PCT;PRN;TOP
     Route: 061
     Dates: start: 20070701, end: 20071001

REACTIONS (3)
  - ABORTION SPONTANEOUS [None]
  - DRUG EXPOSURE DURING PREGNANCY [None]
  - PREGNANCY [None]
